FAERS Safety Report 21059456 (Version 1)
Quarter: 2022Q3

REPORT INFORMATION
  Report Type: Spontaneous
  Country: FR (occurrence: FR)
  Receive Date: 20220708
  Receipt Date: 20220708
  Transmission Date: 20221026
  Serious: Yes (Other)
  Sender: FDA-Public Use
  Company Number: None

PATIENT
  Age: 7 Year
  Sex: Male
  Weight: 18.8 kg

DRUGS (2)
  1. METHOTREXATE [Suspect]
     Active Substance: METHOTREXATE
     Indication: Product used for unknown indication
     Dosage: 10 MILLIGRAM, QD,  10 MG/D INSTEAD OF 23 MG/WK ON SATURDAY
     Route: 065
     Dates: start: 20220608, end: 20220611
  2. DEXAMETHASONE [Concomitant]
     Active Substance: DEXAMETHASONE
     Dosage: UNK,  NOT ADMINISTERED
     Route: 065

REACTIONS (6)
  - Hepatic cytolysis [Recovering/Resolving]
  - Lymphopenia [Recovering/Resolving]
  - Product preparation error [Recovered/Resolved]
  - Inappropriate schedule of product administration [Recovered/Resolved]
  - Product label on wrong product [Recovered/Resolved]
  - Product administration error [Unknown]

NARRATIVE: CASE EVENT DATE: 20220608
